FAERS Safety Report 21321215 (Version 1)
Quarter: 2022Q3

REPORT INFORMATION
  Report Type: Spontaneous
  Country: US (occurrence: None)
  Receive Date: 20220912
  Receipt Date: 20220912
  Transmission Date: 20221027
  Serious: No
  Sender: FDA-Public Use
  Company Number: 2022A301956

PATIENT
  Age: 1038 Month
  Sex: Male
  Weight: 73 kg

DRUGS (1)
  1. FARXIGA [Suspect]
     Active Substance: DAPAGLIFLOZIN PROPANEDIOL
     Indication: Chronic kidney disease
     Route: 048
     Dates: start: 202208

REACTIONS (6)
  - Penile erythema [Recovering/Resolving]
  - Penile swelling [Recovering/Resolving]
  - Fungal infection [Recovering/Resolving]
  - Weight decreased [Not Recovered/Not Resolved]
  - Infection [Recovering/Resolving]
  - Skin disorder [Unknown]

NARRATIVE: CASE EVENT DATE: 20220801
